FAERS Safety Report 10638705 (Version 1)
Quarter: 2014Q4

REPORT INFORMATION
  Report Type: Spontaneous
  Country: AU (occurrence: None)
  Receive Date: 20141204
  Receipt Date: 20141204
  Transmission Date: 20150529
  Serious: Yes (Other)
  Sender: FDA-Public Use
  Company Number: 2014-20871

PATIENT
  Age: 72 Year
  Sex: Female

DRUGS (1)
  1. EYLEA [Suspect]
     Active Substance: AFLIBERCEPT
     Indication: AGE-RELATED MACULAR DEGENERATION
     Dosage: 12 INJECTIONS RIGHT EYE,
     Route: 031
     Dates: start: 20121205, end: 20121205

REACTIONS (9)
  - Eyelid ptosis [None]
  - Inappropriate schedule of drug administration [None]
  - Visual impairment [None]
  - Eye pruritus [None]
  - Metamorphopsia [None]
  - Lacrimation increased [None]
  - Glare [None]
  - Conjunctival haemorrhage [None]
  - Eye laser surgery [None]

NARRATIVE: CASE EVENT DATE: 20140825
